FAERS Safety Report 23518440 (Version 1)
Quarter: 2024Q1

REPORT INFORMATION
  Report Type: Spontaneous
  Country: US (occurrence: None)
  Receive Date: 20240213
  Receipt Date: 20240213
  Transmission Date: 20240409
  Serious: No
  Sender: FDA-Public Use
  Company Number: None

PATIENT
  Age: 13 Year
  Sex: Male

DRUGS (8)
  1. TRIKAFTA [Suspect]
     Active Substance: ELEXACAFTOR\IVACAFTOR\TEZACAFTOR
     Indication: Cystic fibrosis
     Dosage: 100-50-75 + 150MG?TAKE 2 TABLETS EVERY MORNING AND TAKE 1 TABLET EVERY EVENING.  SWALLOW WIT FATTY F
     Route: 001
     Dates: start: 20210731
  2. AZITHROMYCIN [Concomitant]
  3. EPINEPHRINE [Concomitant]
     Active Substance: EPINEPHRINE
  4. FOLIC ACID [Concomitant]
     Active Substance: FOLIC ACID
  5. GUANFACINE [Concomitant]
     Active Substance: GUANFACINE
  6. HYDROXYZINE HYDROCHLORIDE [Concomitant]
     Active Substance: HYDROXYZINE HYDROCHLORIDE
  7. HERBALS\TURMERIC [Concomitant]
     Active Substance: HERBALS\TURMERIC
  8. ZINC  LOZ LOZENGES [Concomitant]

REACTIONS (1)
  - Pyrexia [None]

NARRATIVE: CASE EVENT DATE: 20240213
